FAERS Safety Report 12067361 (Version 1)
Quarter: 2016Q1

REPORT INFORMATION
  Report Type: Other
  Country: CA (occurrence: CA)
  Receive Date: 20160211
  Receipt Date: 20160211
  Transmission Date: 20160526
  Serious: Yes (Other)
  Sender: FDA-Public Use
  Company Number: CA-LUPIN PHARMACEUTICALS INC.-2016-00615

PATIENT
  Age: 77 Year
  Sex: Female

DRUGS (2)
  1. RABEPRAZOLE [Suspect]
     Active Substance: RABEPRAZOLE
     Indication: DYSPEPSIA
  2. RABEPRAZOLE [Suspect]
     Active Substance: RABEPRAZOLE
     Indication: DYSPEPSIA
     Route: 065

REACTIONS (2)
  - Gastric polyps [Recovering/Resolving]
  - Iron deficiency anaemia [Recovered/Resolved]
